FAERS Safety Report 10510404 (Version 1)
Quarter: 2014Q4

REPORT INFORMATION
  Report Type: Spontaneous
  Country: US (occurrence: None)
  Receive Date: 20141009
  Receipt Date: 20141009
  Transmission Date: 20150528
  Serious: Yes (Other)
  Sender: FDA-Public Use
  Company Number: None

PATIENT
  Age: 70 Year
  Sex: Female

DRUGS (1)
  1. FLUCONAZOLE. [Suspect]
     Active Substance: FLUCONAZOLE
     Indication: VULVOVAGINAL MYCOTIC INFECTION
     Dosage: 2 PILLS, # 2 48 HRS LKATER 2ND PILL IN 48 HRS BY MOUTH
     Route: 048

REACTIONS (5)
  - Skin exfoliation [None]
  - Blister [None]
  - Hypersensitivity [None]
  - Rash papular [None]
  - Skin discolouration [None]
